FAERS Safety Report 25853723 (Version 1)
Quarter: 2025Q3

REPORT INFORMATION
  Report Type: Spontaneous
  Country: JP (occurrence: JP)
  Receive Date: 20250926
  Receipt Date: 20250926
  Transmission Date: 20251020
  Serious: Yes (Other)
  Sender: BRISTOL-MYERS SQUIBB COMPANY
  Company Number: JP-BRISTOL-MYERS SQUIBB COMPANY-2025-009402

PATIENT
  Age: 84 Year
  Sex: Male

DRUGS (5)
  1. REBLOZYL [Suspect]
     Active Substance: LUSPATERCEPT-AAMT
     Indication: Myelodysplastic syndrome with multilineage dysplasia
     Dates: start: 20240511, end: 20240911
  2. REBLOZYL [Suspect]
     Active Substance: LUSPATERCEPT-AAMT
  3. REBLOZYL [Suspect]
     Active Substance: LUSPATERCEPT-AAMT
  4. REBLOZYL [Suspect]
     Active Substance: LUSPATERCEPT-AAMT
  5. REBLOZYL [Suspect]
     Active Substance: LUSPATERCEPT-AAMT

REACTIONS (4)
  - Haemoglobin decreased [Recovered/Resolved]
  - Road traffic accident [Unknown]
  - Reticulocyte count decreased [Recovered/Resolved]
  - Serum ferritin increased [Unknown]

NARRATIVE: CASE EVENT DATE: 20240911
